FAERS Safety Report 5355544-5 (Version None)
Quarter: 2007Q2

REPORT INFORMATION
  Report Type: 
  Country: None (occurrence: None)
  Receive Date: 20070530
  Receipt Date: 20061106
  Transmission Date: 20071010
  Serious: Yes (Hospitalization, Other)
  Sender: FDA-Public Use
  Company Number: US200609001531

PATIENT
  Age: 39 Year
  Sex: Male
  Weight: 126.5 kg

DRUGS (6)
  1. ZYPREXA [Suspect]
     Dates: start: 20000101, end: 20010101
  2. SEROQUEL [Concomitant]
  3. RISPERDAL [Concomitant]
  4. LITHIUM CARBONATE [Concomitant]
  5. REMERON [Concomitant]
  6. ZOLOFT [Concomitant]

REACTIONS (7)
  - DIABETES MELLITUS [None]
  - DIABETIC KETOACIDOSIS [None]
  - GLYCOSURIA [None]
  - HYPERTENSION [None]
  - KETONURIA [None]
  - METABOLIC DISORDER [None]
  - OBESITY [None]
